FAERS Safety Report 13736109 (Version 1)
Quarter: 2017Q3

REPORT INFORMATION
  Report Type: Spontaneous
  Country: BR (occurrence: BR)
  Receive Date: 20170710
  Receipt Date: 20170710
  Transmission Date: 20171127
  Serious: Yes (Life-Threatening, Hospitalization, Other)
  Sender: FDA-Public Use
  Company Number: PHHY2012BR083669

PATIENT
  Sex: Female
  Weight: 58 kg

DRUGS (6)
  1. DESERILA [Suspect]
     Active Substance: METHYSERGIDE MALEATE
     Indication: HEADACHE
     Dosage: 2 DF, DAILY
     Route: 048
     Dates: start: 2011
  2. ESTROFEM [Concomitant]
     Active Substance: ESTRADIOL CYPIONATE
     Indication: HORMONE REPLACEMENT THERAPY
     Dosage: 1 MG,DAILY
     Route: 048
  3. DESERILA [Suspect]
     Active Substance: METHYSERGIDE MALEATE
     Indication: MIGRAINE
     Dosage: 2 DF, Q12H
     Route: 048
     Dates: start: 1995
  4. ESTROFEM [Concomitant]
     Active Substance: ESTRADIOL CYPIONATE
     Dosage: 2 MG, DAILY
     Route: 048
  5. AMITRIPTYLINE [Concomitant]
     Active Substance: AMITRIPTYLINE
     Indication: MIGRAINE
     Dosage: 50 MG, DAILY
     Route: 048
  6. DESERILA [Suspect]
     Active Substance: METHYSERGIDE MALEATE
     Dosage: 1 DF, DAILY

REACTIONS (29)
  - Depression [Recovered/Resolved]
  - Swelling [Recovered/Resolved]
  - Abdominal pain [Recovered/Resolved]
  - Headache [Recovered/Resolved]
  - Pain [Not Recovered/Not Resolved]
  - Sleep disorder [Recovered/Resolved]
  - Dizziness [Not Recovered/Not Resolved]
  - Coma [Recovered/Resolved]
  - Vaginal haemorrhage [Recovered/Resolved]
  - Fall [Recovered/Resolved]
  - Osteoporosis [Recovered/Resolved]
  - Breath sounds abnormal [Recovered/Resolved]
  - Migraine [Not Recovered/Not Resolved]
  - Cerebrovascular accident [Recovered/Resolved]
  - Memory impairment [Recovered/Resolved]
  - Syncope [Not Recovered/Not Resolved]
  - Dysgraphia [Recovered/Resolved]
  - Gait disturbance [Recovered/Resolved]
  - Movement disorder [Recovered/Resolved]
  - Nervousness [Not Recovered/Not Resolved]
  - Feeling abnormal [Not Recovered/Not Resolved]
  - Eye disorder [Recovered/Resolved]
  - Bone pain [Recovered/Resolved]
  - Toothache [Not Recovered/Not Resolved]
  - Anaemia [Recovered/Resolved]
  - Brain hypoxia [Recovered/Resolved]
  - Suicidal ideation [Recovered/Resolved]
  - Feeling cold [Recovered/Resolved]
  - Epistaxis [Not Recovered/Not Resolved]

NARRATIVE: CASE EVENT DATE: 1996
